FAERS Safety Report 5158000-2 (Version None)
Quarter: 2006Q4

REPORT INFORMATION
  Report Type: 
  Country: None (occurrence: None)
  Receive Date: 20061116
  Receipt Date: 20061025
  Transmission Date: 20070319
  Serious: Yes (Other)
  Sender: FDA-Public Use
  Company Number: 2006131613

PATIENT
  Age: 49 Year
  Sex: Male
  Weight: 111.1313 kg

DRUGS (5)
  1. LIPITOR [Suspect]
     Indication: BLOOD CHOLESTEROL INCREASED
     Dosage: 10 MG (10 MG, 1 IN 1 D), ORAL
     Route: 048
     Dates: start: 20040101, end: 20061001
  2. VITAMIN C (VITAMIN C) [Concomitant]
  3. VITAMIN E [Concomitant]
  4. MULTIVITAMIN [Concomitant]
  5. ASPIRIN [Concomitant]

REACTIONS (3)
  - ARRHYTHMIA [None]
  - ASTHENIA [None]
  - MUSCULOSKELETAL PAIN [None]
